FAERS Safety Report 20304679 (Version 1)
Quarter: 2022Q1

REPORT INFORMATION
  Report Type: Spontaneous
  Country: US (occurrence: None)
  Receive Date: 20220105
  Receipt Date: 20220105
  Transmission Date: 20220424
  Serious: Yes (Hospitalization, Other)
  Sender: FDA-Public Use
  Company Number: None

PATIENT
  Age: 9 Month
  Sex: Male
  Weight: 8.1 kg

DRUGS (3)
  1. CEFDINIR [Suspect]
     Active Substance: CEFDINIR
     Indication: Ear infection
     Dosage: OTHER QUANTITY : 3 ML;?FREQUENCY : TWICE A DAY;?
     Route: 048
     Dates: start: 20211016, end: 20211020
  2. Ciproex [Concomitant]
  3. TYLENOL [Concomitant]
     Active Substance: ACETAMINOPHEN

REACTIONS (8)
  - Vomiting [None]
  - Pyrexia [None]
  - Rash [None]
  - Haematochezia [None]
  - Ear infection [None]
  - Condition aggravated [None]
  - Expired product administered [None]
  - Product dispensing error [None]

NARRATIVE: CASE EVENT DATE: 20211016
